FAERS Safety Report 24177529 (Version 1)
Quarter: 2024Q3

REPORT INFORMATION
  Report Type: Other
  Country: GB (occurrence: GB)
  Receive Date: 20240806
  Receipt Date: 20240806
  Transmission Date: 20241017
  Serious: Yes (Hospitalization)
  Sender: IPCA
  Company Number: None

PATIENT

DRUGS (14)
  1. FUROSEMIDE [Suspect]
     Active Substance: FUROSEMIDE
     Indication: Product used for unknown indication
     Dosage: 20 MILLIGRAM, QD, PRN
     Route: 065
     Dates: start: 20240605
  2. SOLIFENACIN [Concomitant]
     Active Substance: SOLIFENACIN
     Indication: Product used for unknown indication
     Dosage: 5 MILLIGRAM, QD
     Route: 065
  3. TIOTROPIUM [Concomitant]
     Active Substance: TIOTROPIUM
     Indication: Product used for unknown indication
     Dosage: 2.5 MICROGRAMS / DOSE INHALATION SOLUTION CARTRIDGE CFC FREE
     Route: 065
  4. CALCIUM CARBONATE\CHOLECALCIFEROL [Concomitant]
     Active Substance: CALCIUM CARBONATE\CHOLECALCIFEROL
     Indication: Product used for unknown indication
     Dosage: 750 MG / 200 UNIT CAPLETS
     Route: 065
  5. SENNA [Concomitant]
     Active Substance: SENNA LEAF\SENNOSIDES\SENNOSIDES A AND B
     Indication: Product used for unknown indication
     Dosage: 7.5MG. 2 AT NIGHT.
     Route: 065
  6. SIMVASTATIN [Concomitant]
     Active Substance: SIMVASTATIN
     Indication: Product used for unknown indication
     Dosage: AT NIGHT
     Route: 065
  7. RAMIPRIL [Concomitant]
     Active Substance: RAMIPRIL
     Indication: Product used for unknown indication
     Dosage: 2.5 MILLIGRAM, QD
     Route: 065
  8. ALBUTEROL [Concomitant]
     Active Substance: ALBUTEROL
     Indication: Product used for unknown indication
     Dosage: UNK
     Route: 065
  9. LORAZEPAM [Concomitant]
     Active Substance: LORAZEPAM
     Indication: Product used for unknown indication
     Dosage: 1 MG TABLETS HALF A TABLET TO ONE TO BE TAKEN AT NIGHT WHEN REQUIRED
     Route: 065
  10. Duoresp spirimax [Concomitant]
     Indication: Product used for unknown indication
     Dosage: 160 MICROGRAMS / DOSE / 4.5 MICROGRAMS / DOSE DRY POWDER INHALER
     Route: 065
  11. IBANDRONIC ACID [Concomitant]
     Active Substance: IBANDRONIC ACID
     Indication: Product used for unknown indication
     Dosage: ONE TO BE TAKEN EACH MONTH 1 HOUR BEFORE BREAKFAST
     Route: 065
  12. DERMOL [Concomitant]
     Active Substance: BENZALKONIUM CHLORIDE\CHLORHEXIDINE HYDROCHLORIDE\ISOPROPYL MYRISTATE\PARAFFIN
     Indication: Product used for unknown indication
     Dosage: 200 SHOWER EMOLLIENT APPLY TO THE SKIN OR USE AS A SOAP SUBSTITUTE
  13. ALBUTEROL [Concomitant]
     Active Substance: ALBUTEROL
     Indication: Product used for unknown indication
     Dosage: 2.5 MG / 2.5 ML NEBULISER LIQUID UNIT DOSE VIALS ONE DOSE TO BE INHALED FOUR TIMES A DAY WHEN REQUIR
  14. DOCUSATE [Concomitant]
     Active Substance: DOCUSATE
     Indication: Product used for unknown indication
     Dosage: MORNING AND NIGHT
     Route: 065

REACTIONS (2)
  - Vomiting [Unknown]
  - Fall [Unknown]
